FAERS Safety Report 6718486-6 (Version None)
Quarter: 2010Q2

REPORT INFORMATION
  Report Type: 
  Country: None (occurrence: None)
  Receive Date: 20100510
  Receipt Date: 20100428
  Transmission Date: 20101027
  Serious: Yes (Hospitalization)
  Sender: FDA-Public Use
  Company Number: FR-PFIZER INC-2010053593

PATIENT
  Age: 33 Year
  Sex: Female

DRUGS (6)
  1. SOLU-MEDROL [Suspect]
     Dosage: UNK
     Route: 042
     Dates: start: 20080101
  2. SOLU-MEDROL [Suspect]
     Dosage: UNK
     Route: 042
  3. LOVENOX [Concomitant]
     Dosage: 60 MG/0.6ML/DAY
     Route: 058
  4. COLOFOAM [Concomitant]
  5. CERAZETTE [Concomitant]
  6. CORTANCYL [Concomitant]

REACTIONS (1)
  - CYTOMEGALOVIRUS INFECTION [None]
